FAERS Safety Report 8741630 (Version 4)
Quarter: 2015Q1

REPORT INFORMATION
  Report Type: Spontaneous
  Country: US (occurrence: US)
  Receive Date: 20120824
  Receipt Date: 20150115
  Transmission Date: 20150721
  Serious: No
  Sender: FDA-Public Use
  Company Number: US-ASTRAZENECA-2011SE51229

PATIENT
  Age: 53 Year
  Sex: Male
  Weight: 88.5 kg

DRUGS (4)
  1. SYMBICORT [Suspect]
     Active Substance: BUDESONIDE\FORMOTEROL FUMARATE DIHYDRATE
     Indication: CHRONIC OBSTRUCTIVE PULMONARY DISEASE
     Dosage: 160/4.5 TWO PUFFS TWO TIMES A DAY
     Route: 055
     Dates: start: 20140811
  2. NEXIUM [Suspect]
     Active Substance: ESOMEPRAZOLE MAGNESIUM
     Indication: GASTROOESOPHAGEAL REFLUX DISEASE
     Route: 048
     Dates: start: 20140811
  3. DIALZEM [Concomitant]
  4. CRESTOR [Suspect]
     Active Substance: ROSUVASTATIN CALCIUM
     Indication: LIPIDS INCREASED
     Route: 048
     Dates: start: 20140811

REACTIONS (9)
  - Drug dose omission [Unknown]
  - Circumstance or information capable of leading to device use error [Unknown]
  - Asthma [Unknown]
  - Dyspnoea [Unknown]
  - Lipids increased [Unknown]
  - Off label use [Unknown]
  - Blood cholesterol increased [Unknown]
  - Chronic obstructive pulmonary disease [Unknown]
  - Gastrooesophageal reflux disease [Unknown]
